FAERS Safety Report 4915305-5 (Version None)
Quarter: 2006Q1

REPORT INFORMATION
  Report Type: 
  Country: None (occurrence: None)
  Receive Date: 20060217
  Receipt Date: 20050913
  Transmission Date: 20060701
  Serious: Yes (Other)
  Sender: FDA-Public Use
  Company Number: CN-GLAXOSMITHKLINE-B0394717A

PATIENT
  Age: 24 Year
  Sex: Male

DRUGS (1)
  1. LAMIVUDINE [Suspect]
     Dosage: 100MG PER DAY
     Route: 048
     Dates: start: 20020101, end: 20020101

REACTIONS (4)
  - DYSKINESIA [None]
  - DYSTONIA [None]
  - POSTURE ABNORMAL [None]
  - TORTICOLLIS [None]
